FAERS Safety Report 24120527 (Version 1)
Quarter: 2024Q3

REPORT INFORMATION
  Report Type: Report from Study
  Country: US (occurrence: None)
  Receive Date: 20240722
  Receipt Date: 20240722
  Transmission Date: 20241017
  Serious: Yes (Other)
  Sender: ASTRAZENECA
  Company Number: 2020SF59651

PATIENT
  Sex: Male

DRUGS (4)
  1. KOSELUGO [Suspect]
     Active Substance: SELUMETINIB
     Indication: Neurofibromatosis
     Route: 048
     Dates: start: 20200505
  2. RISPERIDONE [Concomitant]
     Active Substance: RISPERIDONE
  3. MELATONIN [Concomitant]
     Active Substance: MELATONIN
  4. IMODIUM [Concomitant]
     Active Substance: LOPERAMIDE HYDROCHLORIDE

REACTIONS (1)
  - Cellulitis staphylococcal [Recovered/Resolved]
